FAERS Safety Report 9893148 (Version 2)
Quarter: 2014Q3

REPORT INFORMATION
  Report Type: Spontaneous
  Country: AR (occurrence: AR)
  Receive Date: 20140213
  Receipt Date: 20140715
  Transmission Date: 20150326
  Serious: Yes (Other)
  Sender: FDA-Public Use
  Company Number: AR-AMGEN-ARGSP2014010026

PATIENT
  Age: 47 Year
  Sex: Female

DRUGS (3)
  1. ACIFOL                             /00024201/ [Concomitant]
     Dosage: UNK
     Route: 048
  2. ENBREL [Suspect]
     Active Substance: ETANERCEPT
     Indication: RHEUMATOID ARTHRITIS
     Dosage: 50 MG, WEEKLY
     Route: 058
     Dates: start: 20040910
  3. VOLTAREN [Concomitant]
     Active Substance: DICLOFENAC SODIUM
     Dosage: UNK
     Route: 048

REACTIONS (4)
  - Blindness unilateral [Not Recovered/Not Resolved]
  - Visual acuity reduced [Not Recovered/Not Resolved]
  - Uveitis [Not Recovered/Not Resolved]
  - Ocular hypertension [Not Recovered/Not Resolved]

NARRATIVE: CASE EVENT DATE: 2008
